FAERS Safety Report 15596289 (Version 2)
Quarter: 2020Q1

REPORT INFORMATION
  Report Type: Spontaneous
  Country: ES (occurrence: ES)
  Receive Date: 20181107
  Receipt Date: 20200110
  Transmission Date: 20200409
  Serious: Yes (Other)
  Sender: FDA-Public Use
  Company Number: PHHY2018ES148506

PATIENT
  Age: 80 Year
  Sex: Male

DRUGS (10)
  1. ACLIDINIUM BROMIDE. [Concomitant]
     Active Substance: ACLIDINIUM BROMIDE
     Indication: CHRONIC OBSTRUCTIVE PULMONARY DISEASE
     Dosage: UNK
     Route: 055
  2. BICALUTAMIDE. [Concomitant]
     Active Substance: BICALUTAMIDE
     Indication: METASTASIS
  3. ATORVASTATIN [Concomitant]
     Active Substance: ATORVASTATIN
     Indication: DYSLIPIDAEMIA
     Dosage: UNK
     Route: 048
  4. BICALUTAMIDE. [Concomitant]
     Active Substance: BICALUTAMIDE
     Indication: PROSTATE CANCER
     Dosage: UNK
     Route: 065
  5. ZOLEDRONIC ACID [Suspect]
     Active Substance: ZOLEDRONIC ACID
     Indication: PROSTATE CANCER
  6. OMEPRAZOLE. [Concomitant]
     Active Substance: OMEPRAZOLE
     Indication: DYSLIPIDAEMIA
     Dosage: UNK
     Route: 048
  7. ZOLEDRONIC ACID [Suspect]
     Active Substance: ZOLEDRONIC ACID
     Indication: METASTASIS
     Dosage: CUMULATIVE DOSE OF 116 MG IN 29 MONTHS
     Route: 042
     Dates: start: 201311
  8. LEUPRORELIN [Concomitant]
     Active Substance: LEUPROLIDE ACETATE
     Indication: METASTASIS
  9. INDACATEROL [Concomitant]
     Active Substance: INDACATEROL
     Indication: CHRONIC OBSTRUCTIVE PULMONARY DISEASE
     Dosage: UNK
     Route: 055
  10. LEUPRORELIN [Concomitant]
     Active Substance: LEUPROLIDE ACETATE
     Indication: PROSTATE CANCER
     Dosage: UNK
     Route: 065

REACTIONS (3)
  - Renal failure [Recovering/Resolving]
  - Fanconi syndrome acquired [Recovered/Resolved]
  - Renal tubular disorder [Recovering/Resolving]
